FAERS Safety Report 9807028 (Version 1)
Quarter: 2014Q1

REPORT INFORMATION
  Report Type: Spontaneous
  Country: US (occurrence: US)
  Receive Date: 20140110
  Receipt Date: 20140110
  Transmission Date: 20141002
  Serious: No
  Sender: FDA-Public Use
  Company Number: US-009507513-1401USA002957

PATIENT
  Age: 28 Year
  Sex: Female
  Weight: 102.4 kg

DRUGS (2)
  1. NEXPLANON [Suspect]
     Indication: CONTRACEPTION
     Dosage: UNK
     Route: 059
     Dates: start: 20131227, end: 20131227
  2. NEXPLANON [Suspect]
     Dosage: UNK
     Route: 059
     Dates: start: 20131227

REACTIONS (4)
  - Implant site bruising [Recovering/Resolving]
  - Implant site haemorrhage [Recovering/Resolving]
  - Device difficult to use [Recovered/Resolved]
  - Product quality issue [Unknown]
